FAERS Safety Report 12560170 (Version 1)
Quarter: 2016Q3

REPORT INFORMATION
  Report Type: Spontaneous
  Country: US (occurrence: US)
  Receive Date: 20160715
  Receipt Date: 20160715
  Transmission Date: 20161109
  Serious: No
  Sender: FDA-Public Use
  Company Number: US-JNJFOC-20160623016

PATIENT
  Sex: Male
  Weight: 59.88 kg

DRUGS (2)
  1. MENS ROGAINE EXTRA STRENGTH [Suspect]
     Active Substance: MINOXIDIL
     Indication: ALOPECIA
     Dosage: A DIME SIZE, ONCE
     Route: 061
     Dates: start: 20160623, end: 20160623
  2. MENS ROGAINE EXTRA STRENGTH [Suspect]
     Active Substance: MINOXIDIL
     Route: 061

REACTIONS (4)
  - Drug administered at inappropriate site [Unknown]
  - Product use issue [Unknown]
  - Off label use [Unknown]
  - Expired product administered [Unknown]
